FAERS Safety Report 22369346 (Version 1)
Quarter: 2023Q2

REPORT INFORMATION
  Report Type: Report from Study
  Country: US (occurrence: US)
  Receive Date: 20230526
  Receipt Date: 20230526
  Transmission Date: 20230721
  Serious: Yes (Other)
  Sender: FDA-Public Use
  Company Number: US-ABBVIE-5179410

PATIENT
  Sex: Female

DRUGS (2)
  1. HUMIRA [Suspect]
     Active Substance: ADALIMUMAB
     Indication: Product used for unknown indication
     Dosage: FORM STRENGTH : 40 MILLIGRAM?CITRATE FREE
     Route: 058
     Dates: start: 20221228, end: 202304
  2. HUMIRA [Suspect]
     Active Substance: ADALIMUMAB
     Dosage: FORM STRENGTH : 40 MILLIGRAM?CITRATE FREE
     Route: 058

REACTIONS (2)
  - Gastric neoplasm [Unknown]
  - Pruritus [Recovering/Resolving]
